FAERS Safety Report 13738767 (Version 1)
Quarter: 2017Q3

REPORT INFORMATION
  Report Type: Spontaneous
  Country: US (occurrence: US)
  Receive Date: 20170710
  Receipt Date: 20170710
  Transmission Date: 20171127
  Serious: Yes (Other)
  Sender: FDA-Public Use
  Company Number: US-SAOL THERAPEUTICS-0701162686

PATIENT
  Sex: Female

DRUGS (1)
  1. LIORESAL [Suspect]
     Active Substance: BACLOFEN
     Indication: MUSCLE SPASTICITY
     Dosage: 700 UNK, UNK
     Route: 037

REACTIONS (4)
  - Withdrawal syndrome [Unknown]
  - Therapeutic response decreased [Not Recovered/Not Resolved]
  - Therapy non-responder [Unknown]
  - Device failure [Unknown]
